FAERS Safety Report 13245859 (Version 4)
Quarter: 2018Q3

REPORT INFORMATION
  Report Type: Report from Study
  Country: KR (occurrence: KR)
  Receive Date: 20170217
  Receipt Date: 20180720
  Transmission Date: 20181010
  Serious: Yes (Hospitalization)
  Sender: FDA-Public Use
  Company Number: KR-ROCHE-1884620

PATIENT
  Age: 43 Year
  Sex: Female

DRUGS (42)
  1. RANITIDINE. [Concomitant]
     Active Substance: RANITIDINE
     Route: 065
     Dates: start: 20170124, end: 20170201
  2. MAGNESIUM SULFATE. [Concomitant]
     Active Substance: MAGNESIUM SULFATE
     Indication: MINERAL SUPPLEMENTATION
     Route: 065
     Dates: start: 20170124, end: 20170124
  3. FRESH FROZEN PLASMA [Concomitant]
     Active Substance: HUMAN PLASMA
     Indication: THROMBOCYTOPENIA
     Route: 065
     Dates: start: 20170124, end: 20170124
  4. CODAEWON FORTE [Concomitant]
     Indication: COUGH
     Route: 065
     Dates: start: 20170109, end: 20170111
  5. MORPHINE HCL [Concomitant]
     Active Substance: MORPHINE HYDROCHLORIDE
     Indication: ARTHRALGIA
     Route: 065
     Dates: start: 20170124, end: 20170201
  6. PHYTONADIONE. [Concomitant]
     Active Substance: PHYTONADIONE
     Route: 065
     Dates: start: 20170124, end: 20170124
  7. METOCLOPRAMIDE. [Concomitant]
     Active Substance: METOCLOPRAMIDE
     Route: 065
     Dates: start: 20170124
  8. COBIMETINIB. [Suspect]
     Active Substance: COBIMETINIB
     Indication: NEOPLASM
     Dosage: AT A STARTING DOSE OF 20 MG WITH ESCALATION OF 20 MG UNTIL THE MAXIMUM TOLERATED DOSE, ONCE DAILY FO
     Route: 048
     Dates: start: 20141217
  9. AZITHROMYCIN ANHYDROUS. [Concomitant]
     Active Substance: AZITHROMYCIN ANHYDROUS
     Indication: PNEUMONIA
     Route: 065
     Dates: start: 20170109, end: 20170109
  10. PIPERACILLIN/TAZOBACTAM [Concomitant]
     Active Substance: PIPERACILLIN SODIUM\TAZOBACTAM SODIUM
     Route: 065
     Dates: start: 20170120
  11. PETHIDINE HCL [Concomitant]
     Indication: MYALGIA
     Route: 065
     Dates: start: 20170130, end: 20170130
  12. OXYCODONE [Concomitant]
     Active Substance: OXYCODONE
     Indication: MYALGIA
     Route: 065
     Dates: start: 20170202
  13. RANITIDINE. [Concomitant]
     Active Substance: RANITIDINE
     Route: 065
     Dates: start: 20170202
  14. METOCLOPRAMIDE. [Concomitant]
     Active Substance: METOCLOPRAMIDE
     Indication: VOMITING
     Route: 065
     Dates: start: 20170124, end: 20170124
  15. PLATELETS [Concomitant]
     Active Substance: HUMAN PLATELET, ALLOGENIC
     Indication: THROMBOCYTOPENIA
     Route: 065
     Dates: start: 20170124, end: 20170124
  16. CHLORPHENIRAMINE. [Concomitant]
     Active Substance: CHLORPHENIRAMINE
     Indication: VOMITING
     Route: 065
     Dates: start: 20170124, end: 20170124
  17. FILTERED PACKED RBC [Concomitant]
     Dosage: 2 UNITS
     Route: 065
     Dates: start: 20170204, end: 20170204
  18. SULFAMETHOXAZOLE/TRIMETHOPRIM [Concomitant]
     Active Substance: SULFAMETHOXAZOLE\TRIMETHOPRIM
     Indication: PNEUMONIA
     Route: 065
     Dates: start: 20170127, end: 20170203
  19. LEVOFLOXACIN. [Concomitant]
     Active Substance: LEVOFLOXACIN
     Indication: PNEUMONIA
     Route: 065
     Dates: start: 20170109, end: 20170115
  20. PHYTONADIONE. [Concomitant]
     Active Substance: PHYTONADIONE
     Indication: HAEMORRHAGE PROPHYLAXIS
     Route: 065
     Dates: start: 20170110, end: 20170110
  21. SULFAMETHOXAZOLE/TRIMETHOPRIM [Concomitant]
     Active Substance: SULFAMETHOXAZOLE\TRIMETHOPRIM
     Route: 065
     Dates: start: 20170208
  22. ATEZOLIZUMAB. [Suspect]
     Active Substance: ATEZOLIZUMAB
     Indication: NEOPLASM
     Dosage: ON DAY 1, 15 AND 29 OF CYCLE 1 (CYCLE LENGTH=42 DAYS [14?DAY RUN?IN PERIOD + 28?DAY CONCOMITANT DOSI
     Route: 042
     Dates: start: 20141120
  23. MORPHINE HCL [Concomitant]
     Active Substance: MORPHINE HYDROCHLORIDE
     Indication: CHEST PAIN
     Route: 065
     Dates: start: 20170109, end: 20170109
  24. PETHIDINE HCL [Concomitant]
     Indication: PAIN
     Route: 065
     Dates: start: 20170110, end: 20170110
  25. RANITIDINE. [Concomitant]
     Active Substance: RANITIDINE
     Indication: PROPHYLAXIS
     Route: 065
     Dates: start: 20170110, end: 20170116
  26. PROPACETAMOL [Concomitant]
     Active Substance: PROPACETAMOL
     Indication: PYREXIA
     Route: 065
     Dates: start: 20170120, end: 20170120
  27. SULFAMETHOXAZOLE/TRIMETHOPRIM [Concomitant]
     Active Substance: SULFAMETHOXAZOLE\TRIMETHOPRIM
     Route: 065
     Dates: start: 20170206, end: 20170206
  28. PIPERACILLIN/TAZOBACTAM [Concomitant]
     Active Substance: PIPERACILLIN SODIUM\TAZOBACTAM SODIUM
     Indication: PNEUMONIA
     Route: 065
     Dates: start: 20170110, end: 20170116
  29. ALBUMIN [Concomitant]
     Active Substance: ALBUMIN HUMAN
     Dosage: 5 TIMES IN TOTAL
     Route: 065
     Dates: start: 20170124, end: 20170125
  30. MEROPENEM. [Concomitant]
     Active Substance: MEROPENEM
     Indication: PNEUMONIA
     Route: 065
     Dates: start: 20170124, end: 20170124
  31. MEROPENEM. [Concomitant]
     Active Substance: MEROPENEM
     Route: 065
     Dates: start: 20170125, end: 20170208
  32. DOXYCYCLINE HYCLATE. [Concomitant]
     Active Substance: DOXYCYCLINE HYCLATE
     Indication: PNEUMONIA
     Route: 065
     Dates: start: 20170124, end: 20170124
  33. TEICOPLANIN [Concomitant]
     Active Substance: TEICOPLANIN
     Indication: PNEUMONIA
     Route: 065
     Dates: start: 20170124, end: 20170125
  34. POTASSIUM CHLORIDE. [Concomitant]
     Active Substance: POTASSIUM CHLORIDE
     Indication: HYPOKALAEMIA
     Route: 065
     Dates: start: 20170129, end: 20170129
  35. LOPERAMIDE OXIDE [Concomitant]
     Active Substance: LOPERAMIDE OXIDE
     Indication: DIARRHOEA
     Route: 065
     Dates: start: 20161228, end: 20161228
  36. CEFTRIAXONE SODIUM. [Concomitant]
     Active Substance: CEFTRIAXONE SODIUM
     Indication: PNEUMONIA
     Route: 065
     Dates: start: 20170109, end: 20170109
  37. LEVOFLOXACIN. [Concomitant]
     Active Substance: LEVOFLOXACIN
     Route: 065
     Dates: start: 20170124, end: 20170124
  38. PIPERACILLIN/TAZOBACTAM [Concomitant]
     Active Substance: PIPERACILLIN SODIUM\TAZOBACTAM SODIUM
     Route: 065
     Dates: start: 20170130, end: 20170130
  39. ALBUMIN [Concomitant]
     Active Substance: ALBUMIN HUMAN
     Indication: PLASMAPHERESIS
     Route: 065
     Dates: start: 20170110, end: 20170110
  40. FILTERED PACKED RBC [Concomitant]
     Indication: ANAEMIA
     Dosage: 1 UNIT
     Route: 065
     Dates: start: 20170126, end: 20170126
  41. POTASSIUM CHLORIDE. [Concomitant]
     Active Substance: POTASSIUM CHLORIDE
     Route: 065
     Dates: start: 20170130, end: 20170131
  42. ACETAMINOPHEN. [Concomitant]
     Active Substance: ACETAMINOPHEN
     Indication: MYALGIA
     Route: 065
     Dates: start: 20170130, end: 20170130

REACTIONS (1)
  - Azotaemia [Recovered/Resolved]

NARRATIVE: CASE EVENT DATE: 20170123
